FAERS Safety Report 6018883-0 (Version None)
Quarter: 2008Q4

REPORT INFORMATION
  Report Type: 
  Country: None (occurrence: None)
  Receive Date: 20081221
  Receipt Date: 20081221
  Transmission Date: 20090506
  Serious: Yes (Hospitalization)
  Sender: FDA-Public Use
  Company Number: None

PATIENT
  Age: 58 Year
  Sex: Male
  Weight: 112.3 kg

DRUGS (2)
  1. ATENOLOL [Suspect]
     Indication: HYPERTENSION
     Dosage: 50 MG BID PO
     Route: 048
     Dates: start: 20020917
  2. VARDENAFIL [Suspect]
     Indication: ERECTILE DYSFUNCTION
     Dosage: 1 TAB PRN PO
     Route: 048
     Dates: start: 20060417

REACTIONS (3)
  - ALCOHOL USE [None]
  - HYPOTENSION [None]
  - SYNCOPE [None]
